FAERS Safety Report 9770612 (Version 1)
Quarter: 2013Q4

REPORT INFORMATION
  Report Type: Spontaneous
  Country: US (occurrence: US)
  Receive Date: 20131218
  Receipt Date: 20131218
  Transmission Date: 20140711
  Serious: Yes (Death)
  Sender: FDA-Public Use
  Company Number: US-GLAXOSMITHKLINE-A1053572A

PATIENT
  Age: 65 Year
  Sex: Female

DRUGS (6)
  1. VOTRIENT [Suspect]
     Indication: RENAL CELL CARCINOMA
     Dosage: 800MG PER DAY
     Route: 048
     Dates: start: 20121217, end: 20130213
  2. ZYRTEC [Concomitant]
  3. TRAZODONE [Concomitant]
  4. LORTAB [Concomitant]
  5. SIMVASTATIN [Concomitant]
  6. GLIPIZIDE [Concomitant]

REACTIONS (1)
  - Death [Fatal]
